FAERS Safety Report 9314940 (Version 3)
Quarter: 2013Q3

REPORT INFORMATION
  Report Type: Spontaneous
  Country: FR (occurrence: FR)
  Receive Date: 20130529
  Receipt Date: 20130712
  Transmission Date: 20140515
  Serious: Yes (Death, Life-Threatening)
  Sender: FDA-Public Use
  Company Number: FR-GE HEALTHCARE MEDICAL DIAGNOSTICS-OMPQ-NO-1305S-0650

PATIENT
  Age: 59 Year
  Sex: Female

DRUGS (9)
  1. OMNIPAQUE [Suspect]
     Indication: PRODUCT USED FOR UNKNOWN INDICATION
     Route: 042
     Dates: start: 20130222, end: 20130222
  2. OMNIPAQUE [Suspect]
     Indication: DIAGNOSTIC PROCEDURE
  3. AUGMENTIN [Concomitant]
  4. CALCIPARINE [Concomitant]
  5. LEDERFOLINE [Concomitant]
  6. KEPPRA [Concomitant]
  7. RANITIDINE [Concomitant]
  8. DOMPERIDONE [Concomitant]
  9. CLINUTREN [Concomitant]

REACTIONS (2)
  - Septic shock [Fatal]
  - Anaphylactic shock [Fatal]
